FAERS Safety Report 23367450 (Version 1)
Quarter: 2024Q1

REPORT INFORMATION
  Report Type: Spontaneous
  Country: US (occurrence: None)
  Receive Date: 20240104
  Receipt Date: 20240104
  Transmission Date: 20240410
  Serious: Yes (Hospitalization)
  Sender: FDA-Public Use
  Company Number: None

PATIENT
  Sex: Female

DRUGS (3)
  1. TADALAFIL [Suspect]
     Active Substance: TADALAFIL
     Indication: Pulmonary hypertension
     Dosage: 20MG EVERY DAY ORAL
     Route: 048
  2. BOSENTAN [Suspect]
     Active Substance: BOSENTAN
  3. AMBRISENTAN [Concomitant]

REACTIONS (1)
  - Respiratory disorder [None]
